FAERS Safety Report 8201888-9 (Version None)
Quarter: 2012Q1

REPORT INFORMATION
  Report Type: 
  Country: None (occurrence: None)
  Receive Date: 20120312
  Receipt Date: 20120302
  Transmission Date: 20120608
  Serious: Yes (Hospitalization, Other)
  Sender: FDA-Public Use
  Company Number: US-BAYER-2011-083431

PATIENT
  Age: 25 Year
  Sex: Female
  Weight: 82 kg

DRUGS (5)
  1. ATENOLOL [Concomitant]
     Dosage: UNK
     Dates: start: 20090825
  2. LODINE [Concomitant]
     Dosage: TID
  3. CIPROFLOXACIN [Concomitant]
     Dosage: UNK
     Dates: start: 20090825
  4. DECADRON [Concomitant]
     Dosage: UNK
     Dates: start: 20090602
  5. YAZ [Suspect]
     Indication: PREMENSTRUAL SYNDROME
     Dosage: UNK
     Dates: start: 20090501, end: 20090826

REACTIONS (18)
  - GAIT DISTURBANCE [None]
  - TONGUE BITING [None]
  - ANXIETY [None]
  - PAIN IN EXTREMITY [None]
  - POST-TRAUMATIC STRESS DISORDER [None]
  - DEPRESSION [None]
  - PULMONARY EMBOLISM [None]
  - DYSPNOEA [None]
  - HEART RATE INCREASED [None]
  - EYE MOVEMENT DISORDER [None]
  - RENAL FAILURE [None]
  - CONVULSION [None]
  - HYPOTENSION [None]
  - ARTHRALGIA [None]
  - DEEP VEIN THROMBOSIS [None]
  - JOINT SWELLING [None]
  - WEIGHT BEARING DIFFICULTY [None]
  - FATIGUE [None]
